FAERS Safety Report 12645728 (Version 1)
Quarter: 2016Q3

REPORT INFORMATION
  Report Type: Spontaneous
  Country: US (occurrence: US)
  Receive Date: 20160811
  Receipt Date: 20160811
  Transmission Date: 20161109
  Serious: No
  Sender: FDA-Public Use
  Company Number: US-ENDO PHARMACEUTICALS INC.-2015-003373

PATIENT
  Sex: Female

DRUGS (7)
  1. PROVERA [Concomitant]
     Active Substance: MEDROXYPROGESTERONE ACETATE
     Indication: POSTPARTUM HYPOPITUITARISM
  2. ENAPRIL [Concomitant]
     Active Substance: ENALAPRIL
     Indication: HYPERTENSION
  3. CENTRUM SILVER 50 PLUS [Concomitant]
     Indication: VITAMIN SUPPLEMENTATION
  4. PREDNISONE TABLETS [Suspect]
     Active Substance: PREDNISONE
     Indication: POSTPARTUM HYPOPITUITARISM
     Route: 065
     Dates: start: 1959
  5. PREMARIN [Concomitant]
     Active Substance: ESTROGENS, CONJUGATED
     Indication: POSTPARTUM HYPOPITUITARISM
  6. BIOTIN [Concomitant]
     Active Substance: BIOTIN
     Indication: NAIL DISORDER
  7. BIOTIN [Concomitant]
     Active Substance: BIOTIN
     Indication: HAIR DISORDER

REACTIONS (2)
  - Arthritis [Unknown]
  - Intentional product misuse [Unknown]

NARRATIVE: CASE EVENT DATE: 1963
